FAERS Safety Report 5951159-6 (Version None)
Quarter: 2008Q4

REPORT INFORMATION
  Report Type: 
  Country: None (occurrence: None)
  Receive Date: 20081113
  Receipt Date: 20081110
  Transmission Date: 20090506
  Serious: Yes (Hospitalization)
  Sender: FDA-Public Use
  Company Number: FR-JNJFOC-20081101934

PATIENT
  Age: 77 Year
  Sex: Male

DRUGS (5)
  1. OFLOCET [Suspect]
     Indication: PROSTATIC DISORDER
     Route: 048
  2. NIFLURIL [Suspect]
     Indication: PROSTATIC DISORDER
     Route: 048
  3. ACETAMINOPHEN [Concomitant]
     Indication: PAIN
     Route: 048
  4. TAMSULOSIN HCL [Concomitant]
     Indication: DRUG USE FOR UNKNOWN INDICATION
     Route: 048
  5. FENOFIBRATE [Concomitant]
     Indication: DRUG USE FOR UNKNOWN INDICATION
     Route: 048

REACTIONS (8)
  - EOSINOPHILIA [None]
  - ESCHERICHIA BACTERAEMIA [None]
  - HEPATIC STEATOSIS [None]
  - HYPERTHERMIA [None]
  - INFLAMMATION [None]
  - RASH ERYTHEMATOUS [None]
  - RASH MACULO-PAPULAR [None]
  - THROMBOCYTOPENIA [None]
